FAERS Safety Report 13818939 (Version 1)
Quarter: 2017Q3

REPORT INFORMATION
  Report Type: Spontaneous
  Country: US (occurrence: US)
  Receive Date: 20170801
  Receipt Date: 20170801
  Transmission Date: 20171127
  Serious: No
  Sender: FDA-Public Use
  Company Number: US-009507513-1707USA011806

PATIENT

DRUGS (1)
  1. NUVARING [Suspect]
     Active Substance: ETHINYL ESTRADIOL\ETONOGESTREL
     Dosage: 2 FOUR WEEKS PERIODS,NEWEACH 4 DAY BREAK
     Route: 067

REACTIONS (2)
  - Inappropriate schedule of drug administration [Unknown]
  - Intentional medical device removal by patient [Unknown]
